FAERS Safety Report 9633008 (Version 2)
Quarter: 2013Q4

REPORT INFORMATION
  Report Type: Report from Study
  Country: FR (occurrence: FR)
  Receive Date: 20131018
  Receipt Date: 20131106
  Transmission Date: 20140711
  Serious: No
  Sender: FDA-Public Use
  Company Number: FR-ABBVIE-13P-056-1156697-00

PATIENT
  Age: 38 Year
  Sex: Female
  Weight: 58 kg

DRUGS (3)
  1. HUMIRA [Suspect]
     Indication: PSORIASIS
     Route: 058
     Dates: start: 20130910, end: 20130910
  2. PNEUMO 23 [Suspect]
     Indication: IMMUNISATION
     Route: 058
     Dates: start: 20130910, end: 20130910
  3. DAIVOBET [Concomitant]
     Indication: PSORIASIS
     Dates: start: 201303

REACTIONS (3)
  - Chest pain [Recovered/Resolved]
  - Dyspnoea [Recovered/Resolved]
  - Cough [Recovered/Resolved]
